FAERS Safety Report 9286184 (Version 1)
Quarter: 2013Q2

REPORT INFORMATION
  Report Type: Spontaneous
  Country: US (occurrence: US)
  Receive Date: 20130513
  Receipt Date: 20130513
  Transmission Date: 20140414
  Serious: Yes (Hospitalization)
  Sender: FDA-Public Use
  Company Number: US-GLAXOSMITHKLINE-A0829286A

PATIENT
  Age: 44 Year
  Sex: Male
  Weight: 93.2 kg

DRUGS (1)
  1. AVANDIA [Suspect]
     Indication: DIABETES MELLITUS
     Route: 048
     Dates: end: 200711

REACTIONS (4)
  - Acute myocardial infarction [Not Recovered/Not Resolved]
  - Coronary artery bypass [Unknown]
  - Stent placement [Unknown]
  - Obstruction [Unknown]
